FAERS Safety Report 20442762 (Version 1)
Quarter: 2022Q1

REPORT INFORMATION
  Report Type: Spontaneous
  Country: US (occurrence: US)
  Receive Date: 20220208
  Receipt Date: 20220208
  Transmission Date: 20220423
  Serious: No
  Sender: FDA-Public Use
  Company Number: US-ALLERGAN-2135312US

PATIENT
  Sex: Male

DRUGS (5)
  1. VRAYLAR [Suspect]
     Active Substance: CARIPRAZINE
     Indication: Depressed mood
     Dosage: 1.5 MG, QD
     Route: 048
     Dates: start: 20210712
  2. VIIBRYD [Suspect]
     Active Substance: VILAZODONE HYDROCHLORIDE
     Indication: Depression
     Dosage: 20 MG, QD
     Dates: start: 20210107
  3. VIIBRYD [Suspect]
     Active Substance: VILAZODONE HYDROCHLORIDE
     Indication: Anxiety
  4. HYDROXYZINE [Concomitant]
     Active Substance: HYDROXYZINE HYDROCHLORIDE
     Dosage: 25 MG, BID
  5. ATIVAN [Concomitant]
     Active Substance: LORAZEPAM
     Dosage: 5 MG, PRN

REACTIONS (4)
  - Dizziness postural [Recovered/Resolved]
  - Heart rate abnormal [Recovered/Resolved]
  - Off label use [Unknown]
  - Dizziness [Recovered/Resolved]
